FAERS Safety Report 18106325 (Version 2)
Quarter: 2020Q3

REPORT INFORMATION
  Report Type: Spontaneous
  Country: CN (occurrence: CN)
  Receive Date: 20200803
  Receipt Date: 20200806
  Transmission Date: 20201103
  Serious: Yes (Death, Other)
  Sender: FDA-Public Use
  Company Number: CN-ASTRAZENECA-2020SE96433

PATIENT
  Sex: Male

DRUGS (3)
  1. IMFINZI [Suspect]
     Active Substance: DURVALUMAB
     Indication: OESOPHAGEAL CARCINOMA
     Dosage: UNKNOWN
     Route: 042
  2. IMFINZI [Suspect]
     Active Substance: DURVALUMAB
     Indication: OESOPHAGEAL CARCINOMA
     Dosage: UNKNOWN
     Route: 042
  3. IMFINZI [Suspect]
     Active Substance: DURVALUMAB
     Indication: METASTASES TO HEART
     Dosage: UNKNOWN
     Route: 042

REACTIONS (5)
  - Atrial fibrillation [Unknown]
  - Chest discomfort [Unknown]
  - Metastases to heart [Fatal]
  - Asthenia [Unknown]
  - Dyspnoea [Unknown]
